FAERS Safety Report 13496735 (Version 1)
Quarter: 2017Q2

REPORT INFORMATION
  Report Type: Spontaneous
  Country: DE (occurrence: DE)
  Receive Date: 20170428
  Receipt Date: 20170428
  Transmission Date: 20170830
  Serious: Yes (Death, Other)
  Sender: FDA-Public Use
  Company Number: DE-009507513-1704DEU013247

PATIENT
  Age: 83 Year
  Sex: Male
  Weight: 82 kg

DRUGS (9)
  1. NALOXONE (NALOXONE HYDROCHLORIDE) [Concomitant]
     Active Substance: NALOXONE HYDROCHLORIDE
     Indication: REVERSAL OF OPIATE ACTIVITY
     Dosage: 0.4 MG, EVERYDAY
     Route: 048
     Dates: start: 20161202
  2. TAMSULOSIN HYDROCHLORIDE. [Concomitant]
     Active Substance: TAMSULOSIN HYDROCHLORIDE
     Indication: BENIGN PROSTATIC HYPERPLASIA
     Dosage: 0.4 MG, EVERYDAY
     Route: 048
  3. TOREM [Concomitant]
     Active Substance: TORSEMIDE
     Indication: HYPERVOLAEMIA
     Dosage: 20 MG, UNK
     Route: 048
     Dates: start: 20161207, end: 20161222
  4. PANTOZOL [Concomitant]
     Active Substance: PANTOPRAZOLE SODIUM
     Indication: GASTRITIS
     Route: 048
  5. DIGITOXIN [Concomitant]
     Active Substance: DIGITOXIN
     Indication: ATRIAL FIBRILLATION
     Dosage: 0.07 MG, UNK
     Route: 048
  6. DIGITOXIN [Concomitant]
     Active Substance: DIGITOXIN
     Dosage: UNK
  7. SIMVASTATIN. [Suspect]
     Active Substance: SIMVASTATIN
     Indication: CORONARY ARTERY DISEASE
     Dosage: 40 MG, UNK
     Route: 048
     Dates: start: 201601, end: 20161206
  8. BICANORM [Concomitant]
     Active Substance: SODIUM BICARBONATE
     Indication: METABOLIC ACIDOSIS
     Dosage: 1 DF
     Route: 048
     Dates: start: 20161217
  9. PALEXIA [Concomitant]
     Active Substance: TAPENTADOL HYDROCHLORIDE
     Indication: PAIN
     Dosage: 50 MG,EVERYDAY
     Route: 048
     Dates: start: 201601, end: 20161201

REACTIONS (2)
  - Rhabdomyolysis [Fatal]
  - Acute kidney injury [Fatal]

NARRATIVE: CASE EVENT DATE: 20161129
